FAERS Safety Report 10142744 (Version 1)
Quarter: 2014Q2

REPORT INFORMATION
  Report Type: Spontaneous
  Country: FR (occurrence: None)
  Receive Date: 20140425
  Receipt Date: 20140425
  Transmission Date: 20141212
  Serious: Yes (Hospitalization)
  Sender: FDA-Public Use
  Company Number: FR-20140137

PATIENT
  Age: 55 Year
  Sex: Male

DRUGS (4)
  1. LIPIODOL [Suspect]
     Indication: THERAPEUTIC EMBOLISATION
     Route: 013
     Dates: start: 20140124, end: 20140124
  2. DOXORUBICIN [Suspect]
     Indication: THERAPEUTIC EMBOLISATION
     Route: 013
     Dates: start: 20140124, end: 20140124
  3. LANZOR (LANSOPRAZOLE) [Concomitant]
  4. PERMIXON [Suspect]

REACTIONS (7)
  - Congestive cardiomyopathy [None]
  - Off label use [None]
  - Asthenia [None]
  - Dyspnoea [None]
  - Oedema peripheral [None]
  - Tachycardia [None]
  - Left ventricular failure [None]
